FAERS Safety Report 15793293 (Version 1)
Quarter: 2019Q1

REPORT INFORMATION
  Report Type: Spontaneous
  Country: DK (occurrence: DK)
  Receive Date: 20190107
  Receipt Date: 20190107
  Transmission Date: 20190417
  Serious: Yes (Hospitalization)
  Sender: FDA-Public Use
  Company Number: DK-BAYER-2019-004881

PATIENT
  Age: 22 Year
  Sex: Female
  Weight: 62 kg

DRUGS (1)
  1. JAYDESS [Suspect]
     Active Substance: LEVONORGESTREL
     Indication: CONTRACEPTION
     Dosage: 14 MCG/24HR, CONT
     Route: 015
     Dates: start: 20160408, end: 20180719

REACTIONS (6)
  - Pregnancy with contraceptive device [Recovered/Resolved]
  - Abdominal pain [Recovered/Resolved]
  - Ectopic pregnancy [Recovered/Resolved]
  - Malaise [Recovered/Resolved]
  - Syncope [Recovered/Resolved]
  - Vaginal haemorrhage [Recovered/Resolved]

NARRATIVE: CASE EVENT DATE: 2018
